FAERS Safety Report 21591173 (Version 1)
Quarter: 2022Q4

REPORT INFORMATION
  Report Type: Spontaneous
  Country: US (occurrence: US)
  Receive Date: 20221114
  Receipt Date: 20221114
  Transmission Date: 20230112
  Serious: No
  Sender: FDA-Public Use
  Company Number: US-SANOFI-01353069

PATIENT
  Sex: Male

DRUGS (4)
  1. MULTAQ [Suspect]
     Active Substance: DRONEDARONE
     Indication: Ventricular extrasystoles
     Dosage: 400 MG, BID
     Dates: start: 202208
  2. MULTAQ [Suspect]
     Active Substance: DRONEDARONE
     Indication: Supraventricular extrasystoles
  3. SIMVASTATIN [Concomitant]
     Active Substance: SIMVASTATIN
     Dosage: UNK
  4. BYSTOLIC [Concomitant]
     Active Substance: NEBIVOLOL HYDROCHLORIDE
     Dosage: UNK

REACTIONS (2)
  - Product dose omission in error [Unknown]
  - Therapeutic response unexpected [Unknown]
